FAERS Safety Report 7555012-6 (Version None)
Quarter: 2011Q2

REPORT INFORMATION
  Report Type: 
  Country: None (occurrence: None)
  Receive Date: 20110615
  Receipt Date: 20110615
  Transmission Date: 20111010
  Serious: Yes (Other)
  Sender: FDA-Public Use
  Company Number: None

PATIENT
  Age: 47 Year
  Sex: Female
  Weight: 111.1313 kg

DRUGS (1)
  1. DEXILANT [Suspect]
     Indication: GASTROOESOPHAGEAL REFLUX DISEASE
     Dosage: 60MG BID PO
     Route: 048
     Dates: start: 20110609, end: 20110612

REACTIONS (4)
  - ARTHRALGIA [None]
  - PYREXIA [None]
  - MUSCULAR WEAKNESS [None]
  - PAIN [None]
